FAERS Safety Report 8510028-8 (Version None)
Quarter: 2012Q2

REPORT INFORMATION
  Report Type: 
  Country: None (occurrence: None)
  Receive Date: 20120405
  Receipt Date: 20090706
  Transmission Date: 20120825
  Serious: Yes (Other)
  Sender: FDA-Public Use
  Company Number: PHEH2009US06695

PATIENT
  Age: 57 Year
  Sex: Female
  Weight: 60 kg

DRUGS (4)
  1. WELLBUTRIN XL [Concomitant]
  2. RECLAST [Suspect]
     Indication: OSTEOPOROSIS POSTMENOPAUSAL
     Dosage: 5 MG, 1 YEAR (5MG/100MG) INFUSE AS DIRECTED, INTRAVENOUS
     Route: 042
     Dates: start: 20090612
  3. ACETAMINOPHEN [Concomitant]
  4. ZOFRAN [Concomitant]

REACTIONS (3)
  - PYREXIA [None]
  - CHILLS [None]
  - HEADACHE [None]
